FAERS Safety Report 7405350-2 (Version None)
Quarter: 2011Q2

REPORT INFORMATION
  Report Type: 
  Country: None (occurrence: None)
  Receive Date: 20110401
  Receipt Date: 20110323
  Transmission Date: 20111010
  Serious: Yes (Disabling, Other)
  Sender: FDA-Public Use
  Company Number: US-1185121

PATIENT
  Age: 85 Year
  Sex: Female

DRUGS (6)
  1. SYSTANE [Concomitant]
  2. DIFLUPREDNATE 0.05% OPHTHALMIC EMULSION [Suspect]
     Indication: IRITIS
     Dosage: (VARIED: BID TO QOD OPHTHALMIC)
     Route: 047
     Dates: start: 20091001, end: 20110117
  3. DIFLUPREDNATE 0.05% OPHTHALMIC EMULSION [Suspect]
     Indication: CORNEAL OEDEMA
     Dosage: (VARIED: BID TO QOD OPHTHALMIC)
     Route: 047
     Dates: start: 20091001, end: 20110117
  4. DIFLUPREDNATE 0.05% OPHTHALMIC EMULSION [Suspect]
     Indication: OCULAR SURFACE DISEASE
     Dosage: (VARIED: BID TO QOD OPHTHALMIC)
     Route: 047
     Dates: start: 20091001, end: 20110117
  5. DOXYCYCLINE [Concomitant]
  6. TIMOLOL [Concomitant]

REACTIONS (1)
  - CORNEAL PERFORATION [None]
